FAERS Safety Report 23566421 (Version 1)
Quarter: 2024Q1

REPORT INFORMATION
  Report Type: Spontaneous
  Country: US (occurrence: None)
  Receive Date: 20240226
  Receipt Date: 20240226
  Transmission Date: 20240410
  Serious: Yes (Death)
  Sender: FDA-Public Use
  Company Number: None

PATIENT
  Age: 14 Year
  Sex: Male

DRUGS (3)
  1. RASUVO [Suspect]
     Active Substance: METHOTREXATE SODIUM
     Indication: Product used for unknown indication
     Dosage: 15MG WEEKLY UNDER THE SKIN
     Route: 058
     Dates: start: 202401
  2. AMBRISENTAN [Concomitant]
     Active Substance: AMBRISENTAN
  3. TADLIQ [Concomitant]
     Active Substance: TADALAFIL

REACTIONS (1)
  - Septic shock [None]

NARRATIVE: CASE EVENT DATE: 20240225
